FAERS Safety Report 24990099 (Version 1)
Quarter: 2025Q1

REPORT INFORMATION
  Report Type: Spontaneous
  Country: US (occurrence: None)
  Receive Date: 20250219
  Receipt Date: 20250219
  Transmission Date: 20250408
  Serious: Yes (Hospitalization)
  Sender: FDA-CTU
  Company Number: None

PATIENT
  Age: 18 Year
  Sex: Female
  Weight: 37.90 kg

DRUGS (2)
  1. MIRCERA [Suspect]
     Active Substance: METHOXY POLYETHYLENE GLYCOL-EPOETIN BETA
     Indication: Anaemia
     Route: 040
     Dates: start: 20250208, end: 20250208
  2. VENOFER [Concomitant]
     Active Substance: IRON SUCROSE

REACTIONS (4)
  - Dizziness [None]
  - Dyspnoea [None]
  - Orthostatic hypotension [None]
  - Rash [None]

NARRATIVE: CASE EVENT DATE: 20250208
